FAERS Safety Report 5399627-2 (Version None)
Quarter: 2007Q3

REPORT INFORMATION
  Report Type: 
  Country: None (occurrence: None)
  Receive Date: 20070727
  Receipt Date: 20070718
  Transmission Date: 20080115
  Serious: Yes (Other)
  Sender: FDA-Public Use
  Company Number: JP-PFIZER INC-2007054605

PATIENT
  Age: 65 Year
  Sex: Male

DRUGS (5)
  1. ZYVOX [Suspect]
     Dosage: DAILY DOSE:600MG
     Route: 042
  2. ALL OTHER THERAPEUTIC PRODUCTS [Concomitant]
  3. IRON [Concomitant]
  4. PREDONINE [Concomitant]
     Route: 048
     Dates: start: 20050101, end: 20070101
  5. INSULIN [Concomitant]
     Route: 058

REACTIONS (2)
  - CATARACT [None]
  - VISUAL ACUITY REDUCED [None]
